FAERS Safety Report 11094131 (Version 2)
Quarter: 2015Q2

REPORT INFORMATION
  Report Type: Report from Study
  Country: KR (occurrence: KR)
  Receive Date: 20150506
  Receipt Date: 20150612
  Transmission Date: 20150821
  Serious: Yes (Hospitalization)
  Sender: FDA-Public Use
  Company Number: KR-OTSUKA PHARMACEUTICAL CO.-2015_000007

PATIENT
  Age: 77 Year
  Sex: Female

DRUGS (12)
  1. CILOSTAZOL. [Suspect]
     Active Substance: CILOSTAZOL
     Indication: ARTERIAL OCCLUSIVE DISEASE
     Dosage: 100 MG, BID
     Route: 048
     Dates: start: 20140203, end: 20140817
  2. CILOSTAZOL. [Suspect]
     Active Substance: CILOSTAZOL
     Dosage: 200 MG, BID
     Route: 048
     Dates: start: 20140818
  3. NIMODIPINE. [Concomitant]
     Active Substance: NIMODIPINE
     Indication: ARTERIAL OCCLUSIVE DISEASE
     Dosage: 60 MG, DAILY DOSE
     Route: 048
     Dates: start: 20140203
  4. SIMVASTAR [Concomitant]
     Indication: ARTERIAL OCCLUSIVE DISEASE
     Dosage: 1 DF, DAILY DOSE
     Route: 048
     Dates: start: 20130203
  5. MEDILAC-DC ENTERIC CAPSULE [Concomitant]
     Indication: PRODUCT USED FOR UNKNOWN INDICATION
     Dosage: 3 DF, DAILY DOSE
     Dates: start: 20140421
  6. NEXIUM [Concomitant]
     Active Substance: ESOMEPRAZOLE MAGNESIUM
     Indication: ARTERIAL OCCLUSIVE DISEASE
     Dosage: 1 DF, DAILY DOSE
     Route: 048
     Dates: start: 20140120
  7. OROCIN [Concomitant]
     Indication: PRODUCT USED FOR UNKNOWN INDICATION
     Dosage: 3 DF, DAILY DOSE
     Route: 065
     Dates: start: 20140421
  8. CELEBREX [Concomitant]
     Active Substance: CELECOXIB
     Indication: PRODUCT USED FOR UNKNOWN INDICATION
     Dosage: 1 DF, DAILY DOSE
     Route: 065
     Dates: start: 20140113
  9. VALIUM [Concomitant]
     Active Substance: DIAZEPAM
     Indication: ARTERIAL OCCLUSIVE DISEASE
     Dosage: 3 DF, DAILY DOSE
     Route: 048
     Dates: start: 20131202
  10. TIRAMIDE [Concomitant]
     Indication: PRODUCT USED FOR UNKNOWN INDICATION
     Dosage: 3 DF, DAILY DOSE
     Dates: start: 20140421
  11. SMECTA SUSPENSION [Concomitant]
     Indication: PRODUCT USED FOR UNKNOWN INDICATION
     Dosage: 3 DF, DAILY DOSE
     Route: 065
     Dates: start: 20140421
  12. AMPHOGEL [Concomitant]
     Indication: PRODUCT USED FOR UNKNOWN INDICATION
     Dosage: 3 DF, DAILY DOSE
     Route: 065
     Dates: start: 20140421

REACTIONS (3)
  - Inappropriate schedule of drug administration [Unknown]
  - Arthralgia [Recovered/Resolved]
  - Large intestinal polypectomy [Recovered/Resolved]

NARRATIVE: CASE EVENT DATE: 20140514
